FAERS Safety Report 8951413 (Version 1)
Quarter: 2012Q4

REPORT INFORMATION
  Report Type: Spontaneous
  Country: CA (occurrence: None)
  Receive Date: 20121129
  Receipt Date: 20121129
  Transmission Date: 20130627
  Serious: Yes (Other)
  Sender: FDA-Public Use
  Company Number: B0848104A

PATIENT
  Age: 43 Year
  Sex: Male

DRUGS (3)
  1. FLUTICASONE PROPIONATE [Suspect]
     Indication: PRODUCT USED FOR UNKNOWN INDICATION
     Route: 055
  2. ADVAIR [Suspect]
     Indication: PRODUCT USED FOR UNKNOWN INDICATION
     Route: 055
  3. RITONAVIR [Suspect]
     Indication: HIV INFECTION

REACTIONS (5)
  - Cushing^s syndrome [None]
  - Muscular weakness [None]
  - Weight increased [None]
  - Rash [None]
  - Muscle atrophy [None]
